FAERS Safety Report 25757549 (Version 1)
Quarter: 2025Q3

REPORT INFORMATION
  Report Type: Spontaneous
  Country: US (occurrence: US)
  Receive Date: 20250903
  Receipt Date: 20250903
  Transmission Date: 20251021
  Serious: Yes (Death, Hospitalization)
  Sender: MYLAN
  Company Number: US-MYLANLABS-2025M1073765

PATIENT
  Sex: Male

DRUGS (3)
  1. COLCHICINE [Suspect]
     Active Substance: COLCHICINE
     Indication: Myopericarditis
     Dosage: 0.6 MILLIGRAM, BID,INGESTED APPROXIMATELY 30 PILLS OF COLCHICINE 0.5 MG, WHICH WAS 15 MG TOTAL
  2. CARVEDILOL [Suspect]
     Active Substance: CARVEDILOL
     Indication: Myopericarditis
     Dosage: 6.25 MILLIGRAM, BID, INGESTED 12-15 IMMEDIATE-RELEASE TABLETS
  3. METHAMPHETAMINE [Suspect]
     Active Substance: METHAMPHETAMINE
     Indication: Product used for unknown indication

REACTIONS (7)
  - Toxicity to various agents [Fatal]
  - Multiple organ dysfunction syndrome [Fatal]
  - Cardiac dysfunction [Fatal]
  - Overdose [Fatal]
  - Drug abuse [Fatal]
  - Mental disorder [Fatal]
  - Off label use [Unknown]
